FAERS Safety Report 5646383-6 (Version None)
Quarter: 2008Q1

REPORT INFORMATION
  Report Type: 
  Country: None (occurrence: None)
  Receive Date: 20080303
  Receipt Date: 20080130
  Transmission Date: 20080703
  Serious: No
  Sender: FDA-Public Use
  Company Number: US-BAYER-200812552NA

PATIENT
  Sex: Male

DRUGS (3)
  1. AVELOX [Suspect]
     Indication: DRUG USE FOR UNKNOWN INDICATION
     Dosage: TOTAL DAILY DOSE: 400 MG  UNIT DOSE: 400 MG
     Route: 048
     Dates: start: 20080123, end: 20080127
  2. PREDNISONE TAB [Concomitant]
  3. PROGRAF [Concomitant]

REACTIONS (1)
  - DIARRHOEA [None]
